FAERS Safety Report 9742271 (Version 1)
Quarter: 2013Q4

REPORT INFORMATION
  Report Type: Spontaneous
  Country: US (occurrence: US)
  Receive Date: 20131210
  Receipt Date: 20131210
  Transmission Date: 20140711
  Serious: No
  Sender: FDA-Public Use
  Company Number: US-BAYER-2013-144190

PATIENT
  Age: 48 Year
  Sex: Female

DRUGS (1)
  1. CLIMARA [Suspect]
     Route: 062

REACTIONS (8)
  - Off label use [None]
  - Product adhesion issue [None]
  - Product quality issue [None]
  - Application site erythema [None]
  - Application site pain [None]
  - Cold sweat [None]
  - Hot flush [None]
  - Flushing [None]
